FAERS Safety Report 6496006-1 (Version None)
Quarter: 2009Q4

REPORT INFORMATION
  Report Type: 
  Country: None (occurrence: None)
  Receive Date: 20091214
  Receipt Date: 20090915
  Transmission Date: 20100525
  Serious: No
  Sender: FDA-Public Use
  Company Number: US-BRISTOL-MYERS SQUIBB COMPANY-14779524

PATIENT
  Age: 28 Year
  Sex: Female
  Weight: 63 kg

DRUGS (3)
  1. ABILIFY [Suspect]
     Indication: DEPRESSION
     Dosage: ARIPIPRAZOLE WAS CUT TO HALF ON 15-SEP-2009
     Dates: start: 20090101
  2. BUSPAR [Suspect]
  3. CELEXA [Suspect]

REACTIONS (3)
  - MUSCLE RIGIDITY [None]
  - RESTLESSNESS [None]
  - TREMOR [None]
